FAERS Safety Report 7589516-7 (Version None)
Quarter: 2011Q3

REPORT INFORMATION
  Report Type: 
  Country: None (occurrence: None)
  Receive Date: 20110705
  Receipt Date: 20110627
  Transmission Date: 20111222
  Serious: Yes (Hospitalization)
  Sender: FDA-Public Use
  Company Number: IT-ROCHE-785991

PATIENT

DRUGS (1)
  1. BEVACIZUMAB [Suspect]
     Route: 042
     Dates: start: 20110328, end: 20110524

REACTIONS (1)
  - HEMIPARESIS [None]
